FAERS Safety Report 5846227-3 (Version None)
Quarter: 2008Q3

REPORT INFORMATION
  Report Type: 
  Country: None (occurrence: None)
  Receive Date: 20080813
  Receipt Date: 20080807
  Transmission Date: 20090109
  Serious: Yes (Hospitalization)
  Sender: FDA-Public Use
  Company Number: TW-JNJFOC-20080505738

PATIENT
  Age: 67 Year
  Sex: Female
  Weight: 65 kg

DRUGS (20)
  1. DECITABINE (DECITABINE) LYOPHILIZED POWDER [Suspect]
     Indication: ACUTE MYELOID LEUKAEMIA
     Dosage: 31.2, MG, IN 1 DAY; INTRAVENOUS, 31.8 MG, IN 1 DAY, INTRAVENOUS
     Route: 042
     Dates: start: 20080312, end: 20080316
  2. DECITABINE (DECITABINE) LYOPHILIZED POWDER [Suspect]
     Indication: ACUTE MYELOID LEUKAEMIA
     Dosage: 31.2, MG, IN 1 DAY; INTRAVENOUS, 31.8 MG, IN 1 DAY, INTRAVENOUS
     Route: 042
     Dates: start: 20080409, end: 20080413
  3. DECITABINE (DECITABINE) LYOPHILIZED POWDER [Suspect]
     Indication: ACUTE MYELOID LEUKAEMIA
     Dosage: 31.2, MG, IN 1 DAY; INTRAVENOUS, 31.8 MG, IN 1 DAY, INTRAVENOUS
     Route: 042
     Dates: start: 20080507, end: 20080511
  4. SENNA (SENNA) [Concomitant]
  5. METOCLOPRAMIDE [Concomitant]
  6. DIPHENHYDRAMINE HCL [Concomitant]
  7. BETAMETHASONE [Concomitant]
  8. GLYCYRRHIZA (GLYCYRRHIZA EXTRACT) [Concomitant]
  9. MAGNESIUM OXIDE (MAGNESIUM OXIDE) [Concomitant]
  10. FLUNARIZINE (FLUNARIZINE) [Concomitant]
  11. MOSAPRIDE CITRATE DIHYDRATE (MOSAPRIDE CITRATE) [Concomitant]
  12. PANTOPRAZOLE SODIUM [Concomitant]
  13. VITAMIN B-COMPLEX (VITAMIN B-COMPLEX) [Concomitant]
  14. ZOLPIDEM TARTRATE [Concomitant]
  15. CEPHALEXIN [Concomitant]
  16. BISCODYL (BISOCHLOROETHYLAMINO METHYLBENZOIC ACID) [Concomitant]
  17. HYDREA (HYDROCYCARBAMIDE) [Concomitant]
  18. FEXOFENADINE HCL [Concomitant]
  19. SODIUM FUSIDATE (FUSIDATE SODIUM) [Concomitant]
  20. CHLORHEXIDINE GLUCONATE [Concomitant]

REACTIONS (9)
  - GENERAL PHYSICAL HEALTH DETERIORATION [None]
  - HAEMOGLOBIN DECREASED [None]
  - MALAISE [None]
  - NEUTROPENIA [None]
  - PHLEBITIS [None]
  - PLATELET COUNT DECREASED [None]
  - PYREXIA [None]
  - THROMBOSIS [None]
  - VASCULITIS [None]
